FAERS Safety Report 16986952 (Version 1)
Quarter: 2019Q4

REPORT INFORMATION
  Report Type: Spontaneous
  Country: FR (occurrence: FR)
  Receive Date: 20191102
  Receipt Date: 20191102
  Transmission Date: 20200122
  Serious: Yes (Hospitalization)
  Sender: FDA-Public Use
  Company Number: FR-ROCHE-2452314

PATIENT
  Age: 56 Year
  Sex: Female
  Weight: 63 kg

DRUGS (2)
  1. TECENTRIQ [Suspect]
     Active Substance: ATEZOLIZUMAB
     Indication: ANAL CANCER
     Dosage: MOST RECENT DOSE OF ATEZOLIZUMAB WAS ON 17/SEP/2019.?798 MG / 15 DAYS
     Route: 041
     Dates: start: 20190220
  2. ELIQUIS [Suspect]
     Active Substance: APIXABAN
     Indication: ATRIAL FIBRILLATION
     Route: 048
     Dates: end: 20190917

REACTIONS (1)
  - Peripheral ischaemia [Recovering/Resolving]

NARRATIVE: CASE EVENT DATE: 20190917
